FAERS Safety Report 13349718 (Version 16)
Quarter: 2017Q4

REPORT INFORMATION
  Report Type: Report from Study
  Country: HU (occurrence: HU)
  Receive Date: 20170320
  Receipt Date: 20171103
  Transmission Date: 20180320
  Serious: Yes (Death, Life-Threatening, Hospitalization)
  Sender: FDA-Public Use
  Company Number: HU-PFIZER INC-2017109542

PATIENT
  Age: 81 Year
  Sex: Male
  Weight: 72 kg

DRUGS (13)
  1. SUNITINIB MALATE. [Suspect]
     Active Substance: SUNITINIB MALATE
     Dosage: 50 MG, CYCLIC (ONCE DAILY (QD) FOR 4 WEEK AND THEN OFF TREATMENT FOR 2 WEEKS)
     Route: 048
     Dates: start: 20170216, end: 20170306
  2. MODUXIN MR [Concomitant]
     Active Substance: TRIMETAZIDINE DIHYDROCHLORIDE
     Dosage: 35 MG, UNK
     Dates: start: 20080523
  3. BETAHISTIN RATIOPHARM [Concomitant]
     Dosage: 16 MG, UNK
     Dates: start: 199501
  4. KALDYUM [Concomitant]
     Active Substance: POTASSIUM CHLORIDE
     Indication: MYOCARDIAL ISCHAEMIA
     Dosage: 600 MG, UNK
     Dates: start: 20080523, end: 20170306
  5. MERAMYL [Concomitant]
     Dosage: 25 MG, UNK
     Dates: start: 200601
  6. ASPIRIN PROTECT [Concomitant]
     Active Substance: ASPIRIN
     Dosage: 100 MG, UNK
     Dates: start: 20080523
  7. SPITOMIN [Concomitant]
     Dosage: 10 MG, UNK
     Dates: start: 201401
  8. SUNITINIB MALATE. [Suspect]
     Active Substance: SUNITINIB MALATE
     Indication: RENAL CELL CARCINOMA
     Dosage: 50 MG, CYCLIC (ONCE DAILY (QD) FOR 4 WEEK AND THEN OFF TREATMENT FOR 2 WEEKS)
     Route: 048
     Dates: start: 20170105, end: 20170201
  9. FUROSEMIDE. [Concomitant]
     Active Substance: FUROSEMIDE
     Dosage: 40 MG, UNK
     Dates: start: 20080523, end: 20170306
  10. METOPROLOL Z HEXAL [Concomitant]
     Active Substance: METOPROLOL SUCCINATE
     Dosage: 50 MG, UNK
     Dates: start: 200901
  11. ROSUTEC [Concomitant]
     Dosage: 10 MG, UNK
     Dates: start: 20080523
  12. NOLPAZA [Concomitant]
     Active Substance: PANTOPRAZOLE SODIUM
     Dosage: 20 MG, UNK
     Dates: start: 200801
  13. SOMNOL [Concomitant]
     Active Substance: APOMORPHINE HYDROCHLORIDE\HEXOBARBITAL\NIACIN\PHENOBARBITAL\SCOPOLAMINE HYDROBROMIDE
     Dosage: 7.5 MG, UNK
     Dates: start: 198701

REACTIONS (2)
  - Hypertensive crisis [Recovered/Resolved with Sequelae]
  - Hepatitis fulminant [Fatal]

NARRATIVE: CASE EVENT DATE: 20170307
